FAERS Safety Report 7803862-0 (Version None)
Quarter: 2011Q4

REPORT INFORMATION
  Report Type: 
  Country: None (occurrence: None)
  Receive Date: 20111010
  Receipt Date: 20111003
  Transmission Date: 20120403
  Serious: Yes (Other)
  Sender: FDA-Public Use
  Company Number: NL-PFIZER INC-2011194522

PATIENT
  Sex: Male
  Weight: 83 kg

DRUGS (2)
  1. CAMPTOSAR [Suspect]
     Dosage: 186 MG, ONCE PER 2 WEEKS
     Route: 042
     Dates: start: 20110101, end: 20110101
  2. ZOFRAN [Concomitant]

REACTIONS (6)
  - SECONDARY IMMUNODEFICIENCY [None]
  - FUNGAL INFECTION [None]
  - NEOPLASM MALIGNANT [None]
  - ABDOMINAL PAIN UPPER [None]
  - DISEASE PROGRESSION [None]
  - NEUROPATHY PERIPHERAL [None]
